FAERS Safety Report 6506563-4 (Version None)
Quarter: 2009Q4

REPORT INFORMATION
  Report Type: 
  Country: None (occurrence: None)
  Receive Date: 20091221
  Receipt Date: 20091210
  Transmission Date: 20100525
  Serious: No
  Sender: FDA-Public Use
  Company Number: US-JNJFOC-20091204311

PATIENT
  Sex: Male

DRUGS (5)
  1. DURAGESIC-100 [Suspect]
     Indication: BACK PAIN
     Route: 062
  2. OXYCODONE [Concomitant]
  3. LYRICA [Concomitant]
  4. AMITRIPTYLINE [Concomitant]
  5. SOMA [Concomitant]

REACTIONS (5)
  - HEADACHE [None]
  - HYPERHIDROSIS [None]
  - INCORRECT DRUG ADMINISTRATION DURATION [None]
  - NAUSEA [None]
  - PRODUCT QUALITY ISSUE [None]
